FAERS Safety Report 18041052 (Version 3)
Quarter: 2020Q3

REPORT INFORMATION
  Report Type: Spontaneous
  Country: US (occurrence: US)
  Receive Date: 20200718
  Receipt Date: 20200917
  Transmission Date: 20201103
  Serious: No
  Sender: FDA-Public Use
  Company Number: US-009507513-2007USA005485

PATIENT
  Age: 29 Year
  Sex: Female
  Weight: 43.54 kg

DRUGS (3)
  1. NEXPLANON [Suspect]
     Active Substance: ETONOGESTREL
     Indication: CONTRACEPTION
     Dosage: 1 IMPLANT ROD/3 YEARS
     Route: 059
     Dates: start: 201705, end: 20200624
  2. NEXPLANON [Suspect]
     Active Substance: ETONOGESTREL
     Indication: CONTRACEPTION
     Dosage: 1 IMPLANT ROD/3 YEARS, LEFT ARM
     Route: 059
     Dates: start: 20200710, end: 20200730
  3. NEXPLANON [Suspect]
     Active Substance: ETONOGESTREL
     Indication: CONTRACEPTION
     Dosage: 1 IMPLANT ROD IN LEFT UPPER ARM
     Route: 059
     Dates: start: 20200730

REACTIONS (6)
  - Device placement issue [Recovered/Resolved]
  - Pain in extremity [Not Recovered/Not Resolved]
  - Device placement issue [Not Recovered/Not Resolved]
  - Implant site bruising [Not Recovered/Not Resolved]
  - Arthropod sting [Unknown]
  - Implant site swelling [Not Recovered/Not Resolved]

NARRATIVE: CASE EVENT DATE: 2020
